FAERS Safety Report 4543851-5 (Version None)
Quarter: 2005Q1

REPORT INFORMATION
  Report Type: 
  Country: None (occurrence: None)
  Receive Date: 20050103
  Receipt Date: 20040107
  Transmission Date: 20050727
  Serious: Yes (Hospitalization)
  Sender: FDA-Public Use
  Company Number: GXKR2004ES00586

PATIENT
  Age: 77 Year
  Sex: Male

DRUGS (1)
  1. LORATADINE [Suspect]
     Indication: PRURITUS
     Dosage: 10 MG

REACTIONS (3)
  - GLOMERULONEPHRITIS [None]
  - NEPHRITIS INTERSTITIAL [None]
  - RENAL TUBULAR NECROSIS [None]
